FAERS Safety Report 19452119 (Version 1)
Quarter: 2021Q2

REPORT INFORMATION
  Report Type: Spontaneous
  Country: US (occurrence: US)
  Receive Date: 20210623
  Receipt Date: 20210623
  Transmission Date: 20210717
  Serious: No
  Sender: FDA-Public Use
  Company Number: US-GLENMARK PHARMACEUTICALS-2021GMK053084

PATIENT

DRUGS (1)
  1. ESTRADIOL VAGINAL INSERTS USP [Suspect]
     Active Substance: ESTRADIOL
     Indication: VULVOVAGINAL DRYNESS
     Dosage: UNK, TWICE A WEEK
     Route: 065
     Dates: start: 2020

REACTIONS (6)
  - Device difficult to use [Unknown]
  - Drug intolerance [Unknown]
  - Device physical property issue [Unknown]
  - Device issue [Unknown]
  - Product substitution issue [Unknown]
  - Discomfort [Recovered/Resolved]
